FAERS Safety Report 25999123 (Version 2)
Quarter: 2025Q4

REPORT INFORMATION
  Report Type: Report from Study
  Country: US (occurrence: US)
  Receive Date: 20251105
  Receipt Date: 20251204
  Transmission Date: 20260117
  Serious: Yes (Other)
  Sender: ALEXION PHARMACEUTICALS
  Company Number: US-AstraZeneca-CH-00966462A

PATIENT
  Sex: Male

DRUGS (1)
  1. ULTOMIRIS [Suspect]
     Active Substance: RAVULIZUMAB-CWVZ
     Indication: Myasthenia gravis
     Route: 065

REACTIONS (15)
  - Diabetes mellitus [Unknown]
  - Dizziness [Recovered/Resolved]
  - Poor quality sleep [Recovering/Resolving]
  - Insomnia [Recovering/Resolving]
  - Diarrhoea [Unknown]
  - Dysphagia [Unknown]
  - Oropharyngeal pain [Recovering/Resolving]
  - Gait disturbance [Recovering/Resolving]
  - Pain in extremity [Recovering/Resolving]
  - Asthenia [Recovering/Resolving]
  - Movement disorder [Recovering/Resolving]
  - Paraesthesia oral [Recovering/Resolving]
  - Swollen tongue [Recovering/Resolving]
  - Dysarthria [Recovering/Resolving]
  - Visual impairment [Recovering/Resolving]
